FAERS Safety Report 6713003-9 (Version None)
Quarter: 2010Q2

REPORT INFORMATION
  Report Type: 
  Country: None (occurrence: None)
  Receive Date: 20100506
  Receipt Date: 20100426
  Transmission Date: 20101027
  Serious: Yes (Life-Threatening)
  Sender: FDA-Public Use
  Company Number: IT-MPIJNJ-2010-01089

PATIENT

DRUGS (6)
  1. VELCADE [Suspect]
     Indication: MULTIPLE MYELOMA
     Dosage: UNK MG, UNK
     Route: 042
     Dates: start: 20091207, end: 20091210
  2. DEXAMETHASONE [Suspect]
     Indication: MULTIPLE MYELOMA
     Dosage: UNK MG, UNK
     Route: 042
     Dates: start: 20091207, end: 20091210
  3. CISPLATIN [Suspect]
     Indication: MULTIPLE MYELOMA
     Dosage: UNK MG, UNK
     Route: 042
     Dates: start: 20091210, end: 20091213
  4. ENDOXAN                            /00021101/ [Suspect]
     Indication: MULTIPLE MYELOMA
     Dosage: UNK MG, UNK
     Route: 042
     Dates: start: 20091211, end: 20091213
  5. ETOPOSIDE [Suspect]
     Indication: MULTIPLE MYELOMA
     Dosage: UNK MG, UNK
     Route: 042
     Dates: start: 20091211, end: 20091213
  6. DOXORUBICIN HCL [Suspect]
     Indication: MULTIPLE MYELOMA
     Dosage: UNK MG, UNK
     Route: 042
     Dates: start: 20091211, end: 20091213

REACTIONS (5)
  - ATRIAL FLUTTER [None]
  - ENTEROCOCCAL SEPSIS [None]
  - ESCHERICHIA SEPSIS [None]
  - STOMATITIS [None]
  - STOMATITIS NECROTISING [None]
